FAERS Safety Report 24156752 (Version 1)
Quarter: 2024Q3

REPORT INFORMATION
  Report Type: Spontaneous
  Country: US (occurrence: None)
  Receive Date: 20240730
  Receipt Date: 20240730
  Transmission Date: 20241017
  Serious: Yes (Death)
  Sender: Public
  Company Number: None

PATIENT
  Age: 67 Year
  Sex: Male

DRUGS (6)
  1. TADALAFIL [Suspect]
     Active Substance: TADALAFIL
     Indication: Pulmonary arterial hypertension
     Dosage: 20MG QD ORAL
     Route: 048
     Dates: start: 20190405, end: 20240710
  2. TADALAFIL [Suspect]
     Active Substance: TADALAFIL
     Indication: Heritable pulmonary arterial hypertension
  3. TADALAFIL [Concomitant]
  4. FUROSEMIDE [Concomitant]
  5. POTASSIUM CHLORIDE [Concomitant]
  6. AMBRISENTAN [Suspect]
     Active Substance: AMBRISENTAN

REACTIONS (1)
  - Death [None]

NARRATIVE: CASE EVENT DATE: 20240710
